FAERS Safety Report 4684584-4 (Version None)
Quarter: 2005Q2

REPORT INFORMATION
  Report Type: 
  Country: None (occurrence: None)
  Receive Date: 20050603
  Receipt Date: 20050525
  Transmission Date: 20051028
  Serious: Yes (Hospitalization, Disabling)
  Sender: FDA-Public Use
  Company Number: CERZ-10891

PATIENT
  Age: 77 Year
  Sex: Female

DRUGS (2)
  1. CEREZYME [Suspect]
     Indication: GAUCHER'S DISEASE
     Dosage: 3600 UNITS Q4WKS IV
     Route: 042
     Dates: start: 19970929, end: 20020619
  2. DARVOCET [Concomitant]

REACTIONS (3)
  - DISLOCATION OF JOINT PROSTHESIS [None]
  - FEMUR FRACTURE [None]
  - MEDICAL DEVICE COMPLICATION [None]
